FAERS Safety Report 19447928 (Version 1)
Quarter: 2021Q2

REPORT INFORMATION
  Report Type: Spontaneous
  Country: US (occurrence: US)
  Receive Date: 20210621
  Receipt Date: 20210621
  Transmission Date: 20210717
  Serious: No
  Sender: FDA-Public Use
  Company Number: None

PATIENT
  Age: 56 Year
  Sex: Male
  Weight: 105 kg

DRUGS (1)
  1. SERTRALINE (SERTRALINE HCL 50MG TAB) [Suspect]
     Active Substance: SERTRALINE HYDROCHLORIDE
     Indication: DEPRESSION
     Dosage: ?          OTHER FREQUENCY:AM;?
     Route: 048
     Dates: start: 20210518, end: 20210601

REACTIONS (3)
  - Agitation [None]
  - Suicidal ideation [None]
  - Hallucination [None]

NARRATIVE: CASE EVENT DATE: 20210528
